FAERS Safety Report 12252004 (Version 1)
Quarter: 2016Q2

REPORT INFORMATION
  Report Type: Spontaneous
  Country: IN (occurrence: IN)
  Receive Date: 20160411
  Receipt Date: 20160411
  Transmission Date: 20160815
  Serious: Yes (Other)
  Sender: FDA-Public Use
  Company Number: IN-ACCORD-039397

PATIENT
  Age: 38 Year
  Sex: Female

DRUGS (1)
  1. CLOZAPINE. [Suspect]
     Active Substance: CLOZAPINE
     Indication: SCHIZOPHRENIA
     Dosage: INITIALLY RECEIVED 25 MG/DAY, THEN GRADUALLY INCREASED TO 150 MG/DAY IN TWO WEEKS.

REACTIONS (2)
  - Eosinophilia [Recovering/Resolving]
  - Alopecia areata [Recovering/Resolving]
